FAERS Safety Report 8331158-X (Version None)
Quarter: 2012Q2

REPORT INFORMATION
  Report Type: 
  Country: None (occurrence: None)
  Receive Date: 20120502
  Receipt Date: 20120412
  Transmission Date: 20120825
  Serious: No
  Sender: FDA-Public Use
  Company Number: US-AMGEN-USASP2012023312

PATIENT
  Sex: Female

DRUGS (2)
  1. ENBREL [Suspect]
     Dosage: 50 MG, UNK
     Route: 058
     Dates: start: 20110921
  2. ENBREL [Suspect]
     Indication: RHEUMATOID ARTHRITIS

REACTIONS (1)
  - FEELING ABNORMAL [None]
